FAERS Safety Report 9128219 (Version 1)
Quarter: 2013Q1

REPORT INFORMATION
  Report Type: Spontaneous
  Country: US (occurrence: US)
  Receive Date: 20130228
  Receipt Date: 20130228
  Transmission Date: 20140127
  Serious: Yes (Other)
  Sender: FDA-Public Use
  Company Number: US-ELI_LILLY_AND_COMPANY-US201302005097

PATIENT
  Sex: Female
  Weight: 61.22 kg

DRUGS (5)
  1. CYMBALTA [Suspect]
     Indication: DEPRESSION
     Dosage: UNK
  2. SIMPONI [Concomitant]
     Indication: RHEUMATOID ARTHRITIS
     Dosage: 50 MG, MONTHLY (1/M)
     Dates: start: 2009, end: 2012
  3. SIMPONI [Concomitant]
     Dosage: 50 MG, QD
     Dates: start: 201210
  4. NEXIUM [Concomitant]
     Dosage: 40 MG, QD
  5. CLONAZEPAM [Concomitant]
     Indication: ANXIETY
     Dosage: 1 MG, PRN
     Route: 048
     Dates: start: 2003

REACTIONS (5)
  - Anaemia [Recovered/Resolved]
  - Drug ineffective [Recovered/Resolved]
  - Hyperhidrosis [Recovered/Resolved]
  - Hyperhidrosis [Not Recovered/Not Resolved]
  - Pain [Unknown]
